FAERS Safety Report 17419621 (Version 1)
Quarter: 2020Q1

REPORT INFORMATION
  Report Type: Spontaneous
  Country: GB (occurrence: GB)
  Receive Date: 20200214
  Receipt Date: 20200214
  Transmission Date: 20200409
  Serious: Yes (Other)
  Sender: FDA-Public Use
  Company Number: GB-TEVA-2020-GB-1186042

PATIENT
  Age: 75 Year
  Sex: Female
  Weight: 70 kg

DRUGS (12)
  1. AMITRIPTYLINE HYDROCHLORIDE. [Concomitant]
     Active Substance: AMITRIPTYLINE HYDROCHLORIDE
     Dosage: AT NIGHT, 1 DF
     Dates: start: 20191022
  2. LACTULOSE. [Concomitant]
     Active Substance: LACTULOSE
     Dosage: 30 ML DAILY; TWICE DAILY, 15 ML
     Dates: start: 20200102, end: 20200112
  3. HYLO-TEAR [Concomitant]
     Dosage: 2 DROPS BOTH EYES, 12 GTT
     Dates: start: 20191022
  4. BISOPROLOL [Suspect]
     Active Substance: BISOPROLOL
     Dosage: 2.5 MG
     Dates: start: 20191022
  5. RAMIPRIL. [Concomitant]
     Active Substance: RAMIPRIL
     Dosage: 1 DF
     Dates: start: 20191022
  6. ATORVASTATIN [Concomitant]
     Active Substance: ATORVASTATIN
     Dosage: AT NIGHT, 1 DF
     Dates: start: 20191022
  7. ANUSOL NOS [Concomitant]
     Active Substance: BALSAM PERU\BENZYL BENZOATE\BISMUTH HYDROXIDE\BISMUTH SUBGALLATE\HYDROCORTISONE ACETATE\ZINC OXIDE
     Dosage: APPLY
     Dates: start: 20200115, end: 20200122
  8. CORACTEN [Concomitant]
     Active Substance: NIFEDIPINE
     Dosage: 2 DF
     Dates: start: 20200110
  9. DOXAZOSIN [Concomitant]
     Active Substance: DOXAZOSIN MESYLATE
     Dosage: 1 DF
     Dates: start: 20191223, end: 20200120
  10. DICLOFENAC DIETHYLAMINE [Concomitant]
     Active Substance: DICLOFENAC DIETHYLAMINE
     Dosage: 2 DOSAGE FORMS DAILY; TWICE DAILY
     Dates: start: 20200102, end: 20200109
  11. ESOMEPRAZOLE. [Concomitant]
     Active Substance: ESOMEPRAZOLE MAGNESIUM
     Dosage: 1 DF
     Dates: start: 20191022
  12. COCODAMOL [Concomitant]
     Active Substance: ACETAMINOPHEN\CODEINE PHOSPHATE
     Dosage: 2 AS NEEDED, MAX 2 FOUR TIMES A DAY, 2 DF
     Dates: start: 20191119, end: 20191120

REACTIONS (5)
  - Feeling cold [Unknown]
  - Nausea [Unknown]
  - Myalgia [Unknown]
  - Fatigue [Not Recovered/Not Resolved]
  - Lethargy [Unknown]
